FAERS Safety Report 11271268 (Version 1)
Quarter: 2015Q3

REPORT INFORMATION
  Report Type: Spontaneous
  Country: DK (occurrence: DK)
  Receive Date: 20150714
  Receipt Date: 20150714
  Transmission Date: 20151125
  Serious: Yes (Hospitalization)
  Sender: FDA-Public Use
  Company Number: PHHY2015DK081027

PATIENT
  Age: 57 Year
  Sex: Male

DRUGS (8)
  1. LANTUS [Concomitant]
     Active Substance: INSULIN GLARGINE
     Indication: TYPE 1 DIABETES MELLITUS
     Route: 065
  2. HJERTEALBYL [Concomitant]
     Indication: ANTICOAGULANT THERAPY
     Route: 065
     Dates: start: 2010
  3. OMEPRAZOL BMM PHARMA [Concomitant]
     Indication: GASTROOESOPHAGEAL REFLUX DISEASE
     Route: 065
  4. ANCOZAN COMP [Suspect]
     Active Substance: HYDROCHLOROTHIAZIDE\LOSARTAN POTASSIUM
     Indication: HYPERTENSION
     Dosage: STRENGTH: 100+25 MG.
     Route: 048
     Dates: start: 201505, end: 20150617
  5. SIMVASTATIN. [Concomitant]
     Active Substance: SIMVASTATIN
     Indication: CARDIOVASCULAR EVENT PROPHYLAXIS
     Route: 065
     Dates: start: 2010
  6. AMLODIPIN SANDOZ//AMLODIPINE BESILATE [Concomitant]
     Indication: HYPERTENSION
     Route: 065
     Dates: start: 201401
  7. METOPROLOLSUCCINAAT [Concomitant]
     Active Substance: METOPROLOL SUCCINATE
     Indication: HYPERTENSION
     Route: 065
     Dates: start: 201310
  8. NOVORAPID [Concomitant]
     Active Substance: INSULIN ASPART
     Indication: TYPE 1 DIABETES MELLITUS
     Route: 065

REACTIONS (4)
  - Urine sodium increased [Unknown]
  - Hyponatraemia [Recovering/Resolving]
  - Urine osmolarity increased [Unknown]
  - Blood osmolarity decreased [Unknown]

NARRATIVE: CASE EVENT DATE: 201506
